FAERS Safety Report 7270712-3 (Version None)
Quarter: 2011Q1

REPORT INFORMATION
  Report Type: 
  Country: None (occurrence: None)
  Receive Date: 20110202
  Receipt Date: 20110121
  Transmission Date: 20110831
  Serious: Yes (Hospitalization)
  Sender: FDA-Public Use
  Company Number: B0696954A

PATIENT
  Sex: Male

DRUGS (20)
  1. NEURONTIN [Concomitant]
     Dates: start: 20071001
  2. TAMSULOSIN HCL [Concomitant]
     Dates: start: 20050201
  3. FAMOTIDINE [Concomitant]
     Dates: start: 20031107
  4. DOCUSATE [Concomitant]
     Dates: start: 20041101
  5. RALTEGRAVIR [Concomitant]
     Dates: start: 20070319
  6. ALBUTEROL [Concomitant]
     Dates: start: 20060804
  7. LACTIC ACID [Concomitant]
     Dates: start: 20071130
  8. MECLIZINE [Concomitant]
  9. MARAVIROC [Suspect]
     Indication: HIV INFECTION
     Dosage: 150MG TWICE PER DAY
     Route: 048
     Dates: start: 20060202, end: 20060729
  10. ETRAVIRINE [Concomitant]
     Dates: start: 20060319
  11. SUDAFED 12 HOUR [Concomitant]
     Dates: start: 20060217
  12. PROMETHAZINE [Concomitant]
     Dates: start: 20050516
  13. AVODART [Concomitant]
     Dates: start: 20050601
  14. FUROSEMIDE [Concomitant]
     Dates: start: 20090722
  15. ACYCLOVIR [Concomitant]
     Dates: start: 20020913
  16. SYNTHROID [Concomitant]
     Dates: start: 20000830
  17. OXYCODONE HCL [Concomitant]
     Dates: start: 20041020
  18. KALETRA [Concomitant]
     Dates: start: 20060801
  19. DONEPEZIL HCL [Concomitant]
     Dates: start: 20100205
  20. FAMCICLOVIR [Concomitant]
     Dates: start: 20090203

REACTIONS (1)
  - HOSPITALISATION [None]
